FAERS Safety Report 7042302-9 (Version None)
Quarter: 2010Q4

REPORT INFORMATION
  Report Type: 
  Country: None (occurrence: None)
  Receive Date: 20101013
  Receipt Date: 20091026
  Transmission Date: 20110411
  Serious: No
  Sender: FDA-Public Use
  Company Number: US-ASTRAZENECA-2009SE08467

PATIENT
  Age: 76 Year
  Sex: Male
  Weight: 70.3 kg

DRUGS (12)
  1. SYMBICORT [Suspect]
     Indication: CHRONIC OBSTRUCTIVE PULMONARY DISEASE
     Route: 055
     Dates: start: 20090810
  2. LEVAQUIN [Suspect]
  3. POLYGLYCOL [Concomitant]
  4. CARVADOPALEVADOPA [Concomitant]
  5. LIPITOR [Concomitant]
  6. COUMADIN [Concomitant]
  7. SYNTHROID [Concomitant]
  8. DILTIAZEM [Concomitant]
  9. AVODART [Concomitant]
  10. COMBIVENT [Concomitant]
  11. DOUNEBS [Concomitant]
  12. PREDNISONE [Concomitant]

REACTIONS (2)
  - MUSCLE SPASMS [None]
  - TENDON PAIN [None]
